FAERS Safety Report 9166198 (Version 2)
Quarter: 2013Q2

REPORT INFORMATION
  Report Type: Spontaneous
  Country: JP (occurrence: JP)
  Receive Date: 20130315
  Receipt Date: 20130426
  Transmission Date: 20140414
  Serious: Yes (Hospitalization)
  Sender: FDA-Public Use
  Company Number: JP-ASTRAZENECA-2013SE15705

PATIENT
  Age: 63 Year
  Sex: Female

DRUGS (3)
  1. FASLODEX [Suspect]
     Indication: BREAST CANCER
     Route: 030
  2. OXYCONTIN [Suspect]
     Dosage: 5-10 MG DAILY
     Route: 065
  3. RANMARK [Concomitant]
     Route: 058

REACTIONS (1)
  - Somnolence [Recovered/Resolved]
